FAERS Safety Report 6806853-1 (Version None)
Quarter: 2010Q2

REPORT INFORMATION
  Report Type: 
  Country: None (occurrence: None)
  Receive Date: 20100629
  Receipt Date: 20080619
  Transmission Date: 20101027
  Serious: No
  Sender: FDA-Public Use
  Company Number: US-PFIZER INC-2008034305

PATIENT
  Sex: Female

DRUGS (4)
  1. XANAX [Suspect]
     Indication: ANXIETY
  2. XANAX [Suspect]
  3. ADRIAMYCIN PFS [Interacting]
     Indication: BREAST CANCER
     Dates: start: 20080326
  4. PROPAFENONE HCL [Interacting]
     Indication: SUPRAVENTRICULAR TACHYCARDIA
     Route: 048
     Dates: start: 20060401

REACTIONS (4)
  - DRUG INEFFECTIVE [None]
  - DRUG INTERACTION [None]
  - HEART RATE INCREASED [None]
  - PALPITATIONS [None]
